FAERS Safety Report 21960713 (Version 3)
Quarter: 2023Q1

REPORT INFORMATION
  Report Type: Other
  Country: CN (occurrence: None)
  Receive Date: 20230207
  Receipt Date: 20230314
  Transmission Date: 20230418
  Serious: Yes (Other)
  Sender: FDA-Public Use
  Company Number: CN-ROCHE-3277909

PATIENT
  Age: 66 Year
  Sex: Female
  Weight: 76 kg

DRUGS (9)
  1. ALECTINIB [Suspect]
     Active Substance: ALECTINIB
     Indication: Non-small cell lung cancer
     Route: 048
     Dates: start: 20220412
  2. HYDROCHLOROTHIAZIDE [Concomitant]
     Active Substance: HYDROCHLOROTHIAZIDE
     Dosage: SYMPTOMATIC TREATMENT OF HYPERTENSION
     Route: 048
     Dates: start: 20230110, end: 20230116
  3. SODIUM POTASSIUM MAGNESIUM CALCIUM AND GLUCOSE [Concomitant]
     Dosage: SYMPTOMATIC TREATMENT OF HYPOKALEMIA
     Route: 050
     Dates: start: 20230109, end: 20230109
  4. SPIRONOLACTONE [Concomitant]
     Active Substance: SPIRONOLACTONE
     Dosage: SYMPTOMATIC TREATMENT OF HYPOKALEMIA
     Route: 048
     Dates: start: 20230104, end: 20230116
  5. AMBROXOL HYDROCHLORIDE [Concomitant]
     Active Substance: AMBROXOL HYDROCHLORIDE
     Dosage: SYMPTOMATIC TREATMENT OF UPPER RESPIRATORY TRACT INFECTION
     Route: 048
     Dates: start: 20230103, end: 20230116
  6. COMPOUND GLYCYRRHIZAE (UNK INGREDIENTS) [Concomitant]
     Dosage: SYMPTOMATIC TREATMENT OF THE NOVEL CORONAVIRUS
     Route: 048
     Dates: start: 20230105, end: 20230105
  7. CODEINE [Concomitant]
     Active Substance: CODEINE
     Dosage: SYMPTOMATIC TREATMENT OF THE NOVEL CORONAVIRUS
     Route: 048
     Dates: start: 20220107, end: 20230107
  8. COMPOUND KUSHEN INJECTION [Concomitant]
     Dosage: CLEARING HEAT AND DAMPNESS TREATMENT
     Route: 042
     Dates: start: 20230104, end: 20230104
  9. DOXOFYLLINE [Concomitant]
     Active Substance: DOXOFYLLINE
     Indication: Asthma
     Route: 050
     Dates: start: 20230103, end: 20230116

REACTIONS (4)
  - Hypokalaemia [Not Recovered/Not Resolved]
  - Upper respiratory tract infection [Not Recovered/Not Resolved]
  - Anaemia [Not Recovered/Not Resolved]
  - Coronavirus infection [Not Recovered/Not Resolved]

NARRATIVE: CASE EVENT DATE: 20221111
